FAERS Safety Report 6149561-5 (Version None)
Quarter: 2009Q2

REPORT INFORMATION
  Report Type: 
  Country: None (occurrence: None)
  Receive Date: 20090409
  Receipt Date: 20090406
  Transmission Date: 20091009
  Serious: Yes (Other)
  Sender: FDA-Public Use
  Company Number: PHEH2009US01519

PATIENT
  Sex: Male
  Weight: 96 kg

DRUGS (4)
  1. GLEEVEC [Suspect]
     Indication: CHRONIC MYELOID LEUKAEMIA
     Dosage: 600 MG, QD
     Route: 048
     Dates: start: 20010101
  2. PRILOSEC [Concomitant]
     Dosage: 40 UNK, UNK
     Route: 048
     Dates: start: 20080501
  3. TYLENOL [Concomitant]
     Dosage: 650 UNK, Q 6 HOURS PRN
  4. CLARITIN [Concomitant]
     Dosage: UNK
     Dates: start: 20040101

REACTIONS (3)
  - BLOOD CREATINE PHOSPHOKINASE INCREASED [None]
  - MYALGIA [None]
  - MYOSITIS [None]
